FAERS Safety Report 15290607 (Version 1)
Quarter: 2018Q3

REPORT INFORMATION
  Report Type: Spontaneous
  Country: GB (occurrence: GB)
  Receive Date: 20180817
  Receipt Date: 20180817
  Transmission Date: 20181010
  Serious: Yes (Hospitalization)
  Sender: FDA-Public Use
  Company Number: GB-009507513-1808GBR006974

PATIENT
  Age: 66 Year
  Sex: Male
  Weight: 76.2 kg

DRUGS (6)
  1. PREDNISOLONE. [Concomitant]
     Active Substance: PREDNISOLONE
  2. CARBOCYSTEINE [Concomitant]
     Active Substance: CARBOCYSTEINE
  3. CETIRIZINE HYDROCHLORIDE. [Concomitant]
     Active Substance: CETIRIZINE HYDROCHLORIDE
  4. ALENDRONATE SODIUM. [Suspect]
     Active Substance: ALENDRONATE SODIUM
     Indication: PROPHYLAXIS
     Route: 048
     Dates: start: 20180624, end: 20180715
  5. BISOPROLOL [Concomitant]
     Active Substance: BISOPROLOL
  6. FUROSEMIDE. [Concomitant]
     Active Substance: FUROSEMIDE

REACTIONS (8)
  - Back pain [Not Recovered/Not Resolved]
  - Muscle spasms [Recovering/Resolving]
  - Mouth ulceration [Not Recovered/Not Resolved]
  - Ear pain [Recovered/Resolved]
  - Swelling face [Not Recovered/Not Resolved]
  - Fatigue [Unknown]
  - Headache [Recovering/Resolving]
  - Peripheral swelling [Not Recovered/Not Resolved]

NARRATIVE: CASE EVENT DATE: 20180624
